FAERS Safety Report 21467546 (Version 2)
Quarter: 2022Q4

REPORT INFORMATION
  Report Type: Report from Study
  Country: CA (occurrence: CA)
  Receive Date: 20221017
  Receipt Date: 20221018
  Transmission Date: 20230112
  Serious: Yes (Hospitalization)
  Sender: FDA-Public Use
  Company Number: CA-BRISTOL-MYERS SQUIBB COMPANY-2022-118377

PATIENT
  Age: 87 Year
  Sex: Male

DRUGS (1)
  1. REVLIMID [Suspect]
     Active Substance: LENALIDOMIDE
     Indication: Plasma cell myeloma
     Dosage: DOSE : 5 MG;     FREQ : 21C/28D
     Route: 048
     Dates: start: 20220722

REACTIONS (2)
  - Pain in extremity [Recovering/Resolving]
  - Prostatic disorder [Recovering/Resolving]

NARRATIVE: CASE EVENT DATE: 20220914
